FAERS Safety Report 4358765-3 (Version None)
Quarter: 2004Q2

REPORT INFORMATION
  Report Type: 
  Country: None (occurrence: None)
  Receive Date: 20040511
  Receipt Date: 20040430
  Transmission Date: 20050107
  Serious: Yes (Other)
  Sender: FDA-Public Use
  Company Number: 2004211481US

PATIENT
  Age: 29 Year
  Sex: Male

DRUGS (3)
  1. ZYVOX [Suspect]
     Indication: OSTEOMYELITIS
  2. TRAMADOL HCL [Suspect]
     Indication: PAIN
     Dosage: TID
  3. CITALOPRAM [Suspect]

REACTIONS (7)
  - ANXIETY [None]
  - HYPERTENSION [None]
  - MEDICATION ERROR [None]
  - OSTEONECROSIS [None]
  - PSYCHOMOTOR HYPERACTIVITY [None]
  - SEROTONIN SYNDROME [None]
  - TREMOR [None]
